FAERS Safety Report 5189414-2 (Version None)
Quarter: 2006Q4

REPORT INFORMATION
  Report Type: 
  Country: None (occurrence: None)
  Receive Date: 20061221
  Receipt Date: 20061211
  Transmission Date: 20070319
  Serious: Yes (Death, Hospitalization)
  Sender: FDA-Public Use
  Company Number: GB-MERCK-0612GBR00051

PATIENT
  Age: 86 Year
  Sex: Male
  Weight: 77 kg

DRUGS (5)
  1. FOSAMAX [Suspect]
     Indication: OSTEOPOROSIS
     Route: 048
     Dates: start: 20061027, end: 20061105
  2. NIFEDIPINE [Concomitant]
     Indication: ANGINA PECTORIS
     Route: 048
     Dates: start: 19960101
  3. ASPIRIN [Concomitant]
     Indication: ANGINA PECTORIS
     Route: 048
     Dates: start: 19960101
  4. ATENOLOL [Concomitant]
     Indication: ANGINA PECTORIS
     Route: 048
     Dates: start: 19960101
  5. GLYBURIDE [Concomitant]
     Indication: DIABETES MELLITUS
     Route: 048
     Dates: start: 19930101

REACTIONS (2)
  - HAEMATEMESIS [None]
  - MELAENA [None]
